FAERS Safety Report 5403173-7 (Version None)
Quarter: 2007Q3

REPORT INFORMATION
  Report Type: 
  Country: None (occurrence: None)
  Receive Date: 20070801
  Receipt Date: 20070723
  Transmission Date: 20080115
  Serious: Yes (Hospitalization)
  Sender: FDA-Public Use
  Company Number: BR-ABBOTT-07P-020-0375740-00

PATIENT
  Age: 77 Year
  Sex: Male
  Weight: 48 kg

DRUGS (3)
  1. HUMIRA [Suspect]
     Indication: RHEUMATOID ARTHRITIS
     Route: 058
     Dates: start: 20061201, end: 20070702
  2. UNKNOWN MEDICATION [Concomitant]
     Indication: PULMONARY FIBROSIS
  3. UNKNOWN MEDICATION [Concomitant]
     Indication: RHEUMATOID ARTHRITIS

REACTIONS (2)
  - ANOREXIA [None]
  - PULMONARY FIBROSIS [None]
